FAERS Safety Report 26039543 (Version 1)
Quarter: 2025Q4

REPORT INFORMATION
  Report Type: Spontaneous
  Country: US (occurrence: None)
  Receive Date: 20251113
  Receipt Date: 20251113
  Transmission Date: 20260118
  Serious: No
  Sender: ORION
  Company Number: US-Orion Corporation ORION PHARMA-ENTC2025-0012

PATIENT
  Sex: Female

DRUGS (1)
  1. STALEVO [Suspect]
     Active Substance: CARBIDOPA\ENTACAPONE\LEVODOPA
     Indication: Parkinson^s disease
     Dosage: 2 PILLS FIVE TIMES A DAY, LEVODOPA 300 MG-CARBIDOPA 75 MG-ENTACAPONE 200 MG, AT 5 AM, 9 AM, 1 PM, 5

REACTIONS (1)
  - Product use issue [Unknown]
